FAERS Safety Report 24392087 (Version 1)
Quarter: 2024Q4

REPORT INFORMATION
  Report Type: Spontaneous
  Country: US (occurrence: None)
  Receive Date: 20241002
  Receipt Date: 20241002
  Transmission Date: 20250115
  Serious: No
  Sender: Public
  Company Number: None

PATIENT
  Age: 78 Year
  Sex: Male
  Weight: 85 kg

DRUGS (1)
  1. SULFAMETHOXAZOLE AND TRIMETHOPRIM [Suspect]
     Active Substance: SULFAMETHOXAZOLE\TRIMETHOPRIM
     Dates: start: 20240130, end: 20240209

REACTIONS (5)
  - Confusional state [None]
  - Fall [None]
  - Hallucination [None]
  - Cellulitis [None]
  - Skin laceration [None]

NARRATIVE: CASE EVENT DATE: 20240209
